FAERS Safety Report 24564548 (Version 1)
Quarter: 2024Q4

REPORT INFORMATION
  Report Type: Spontaneous
  Country: CA (occurrence: CA)
  Receive Date: 20241030
  Receipt Date: 20241030
  Transmission Date: 20250114
  Serious: Yes (Death, Hospitalization, Disabling)
  Sender: ROCHE
  Company Number: CA-ROCHE-10000116801

PATIENT
  Age: 44 Year
  Sex: Female

DRUGS (31)
  1. ACTEMRA [Suspect]
     Active Substance: TOCILIZUMAB
     Indication: Rheumatoid arthritis
     Route: 042
  2. ACTEMRA [Suspect]
     Active Substance: TOCILIZUMAB
     Indication: Rheumatoid arthritis
     Route: 042
  3. RITUXIMAB [Suspect]
     Active Substance: RITUXIMAB
     Indication: Rheumatoid arthritis
     Route: 042
  4. MYCOPHENOLATE MOFETIL [Suspect]
     Active Substance: MYCOPHENOLATE MOFETIL
     Indication: Rheumatoid arthritis
     Route: 065
  5. ACETAMINOPHEN AND CODEINE [Concomitant]
     Active Substance: ACETAMINOPHEN\CODEINE PHOSPHATE
  6. ACETAMINOPHEN AND CODEINE [Concomitant]
     Active Substance: ACETAMINOPHEN\CODEINE PHOSPHATE
  7. ATIVAN [Concomitant]
     Active Substance: LORAZEPAM
  8. CAFFEINE [Concomitant]
     Active Substance: CAFFEINE
  9. DESOGESTREL AND ETHINYL ESTRADIOL [Concomitant]
     Active Substance: DESOGESTREL\ETHINYL ESTRADIOL
  10. DEXAMETHASONE [Concomitant]
     Active Substance: DEXAMETHASONE
  11. ERGOCALCIFEROL [Concomitant]
     Active Substance: ERGOCALCIFEROL
  12. GLUCOSAMINE [Concomitant]
     Active Substance: GLUCOSAMINE
  13. ERYTHROMYCIN [Concomitant]
     Active Substance: ERYTHROMYCIN
  14. IBUPROFEN [Concomitant]
     Active Substance: IBUPROFEN
  15. LANSOPRAZOLE [Concomitant]
     Active Substance: LANSOPRAZOLE
  16. LEVOTHYROXINE SODIUM [Concomitant]
     Active Substance: LEVOTHYROXINE SODIUM
  17. LISINOPRIL [Concomitant]
     Active Substance: LISINOPRIL
  18. LORAZEPAM [Concomitant]
     Active Substance: LORAZEPAM
  19. MAGNESIUM [Concomitant]
     Active Substance: MAGNESIUM
  20. MELOXICAM [Concomitant]
     Active Substance: MELOXICAM
  21. MORPHINE [Concomitant]
     Active Substance: MORPHINE
  22. PIROXICAM [Concomitant]
     Active Substance: PIROXICAM
  23. PREDNISOLONE [Concomitant]
     Active Substance: PREDNISOLONE
  24. QUETIAPINE FUMARATE [Concomitant]
     Active Substance: QUETIAPINE FUMARATE
  25. RISEDRONATE SODIUM [Concomitant]
     Active Substance: RISEDRONATE SODIUM
  26. SULFASALAZINE [Concomitant]
     Active Substance: SULFASALAZINE
  27. ALBUTEROL [Concomitant]
     Active Substance: ALBUTEROL
  28. FISH OIL [Concomitant]
     Active Substance: FISH OIL
  29. TYLENOL [Concomitant]
     Active Substance: ACETAMINOPHEN
  30. ZESTRIL [Concomitant]
     Active Substance: LISINOPRIL
  31. ZOPICLONE [Concomitant]
     Active Substance: ZOPICLONE

REACTIONS (28)
  - Abdominal pain upper [Fatal]
  - Anti-cyclic citrullinated peptide antibody [Fatal]
  - Breast cancer stage III [Fatal]
  - Bursitis [Fatal]
  - C-reactive protein abnormal [Fatal]
  - Confusional state [Fatal]
  - Diarrhoea [Fatal]
  - Dizziness [Fatal]
  - Exposure during pregnancy [Fatal]
  - General physical health deterioration [Fatal]
  - Insomnia [Fatal]
  - Joint range of motion decreased [Fatal]
  - Live birth [Fatal]
  - Memory impairment [Fatal]
  - Mobility decreased [Fatal]
  - Nausea [Fatal]
  - Oedema [Fatal]
  - Oedema peripheral [Fatal]
  - Pain in extremity [Fatal]
  - Pneumonia [Fatal]
  - Pregnancy [Fatal]
  - Pulmonary fibrosis [Fatal]
  - Rheumatoid factor positive [Fatal]
  - Road traffic accident [Fatal]
  - Sleep disorder [Fatal]
  - Thrombocytopenia [Fatal]
  - Vomiting [Fatal]
  - Wheezing [Fatal]
